FAERS Safety Report 5484732-2 (Version None)
Quarter: 2007Q4

REPORT INFORMATION
  Report Type: 
  Country: None (occurrence: None)
  Receive Date: 20071012
  Receipt Date: 20071001
  Transmission Date: 20080405
  Serious: Yes (Death)
  Sender: FDA-Public Use
  Company Number: CA-PFIZER INC-2007081905

PATIENT
  Sex: Male
  Weight: 101 kg

DRUGS (4)
  1. ZIPRASIDONE (CAPS) [Suspect]
     Indication: PSYCHOTIC DISORDER
     Route: 048
     Dates: start: 20070725, end: 20070821
  2. ZIPRASIDONE (CAPS) [Suspect]
  3. TRAZODONE HCL [Concomitant]
     Route: 048
  4. QUETIAPINE FUMARATE [Concomitant]
     Route: 048
     Dates: start: 20070817

REACTIONS (1)
  - COMPLETED SUICIDE [None]
